FAERS Safety Report 4487962-1 (Version None)
Quarter: 2004Q4

REPORT INFORMATION
  Report Type: 
  Country: None (occurrence: None)
  Receive Date: 20041025
  Receipt Date: 20041008
  Transmission Date: 20050328
  Serious: Yes (Death)
  Sender: FDA-Public Use
  Company Number: 2004-0007376

PATIENT
  Age: 30 Year
  Sex: Male

DRUGS (8)
  1. ADEFOVIR DIPIVOXIL (ADEFOVIR DIPIVOXIL) [Suspect]
     Indication: HEPATITIS B
     Dosage: 10 MG, 1 IN 1 D, ORAL; SEE IMAGE
     Route: 048
     Dates: start: 20031027, end: 20031111
  2. ADEFOVIR DIPIVOXIL (ADEFOVIR DIPIVOXIL) [Suspect]
     Indication: HEPATITIS B
     Dosage: 10 MG, 1 IN 1 D, ORAL; SEE IMAGE
     Route: 048
     Dates: start: 20031112, end: 20031113
  3. ADEFOVIR DIPIVOXIL (ADEFOVIR DIPIVOXIL) [Suspect]
     Indication: HEPATITIS B
     Dosage: 10 MG, 1 IN 1 D, ORAL; SEE IMAGE
     Route: 048
     Dates: start: 20031114
  4. ZEFFIX (LAMIVUDINE) [Suspect]
     Indication: HEPATITIS B
     Dosage: 100 MG, 1I N 1 D, ORAL
     Route: 048
     Dates: start: 20010725, end: 20040409
  5. URSODEOXYCHOLIC ACID (URSODEOXYCHOLIC ACID) [Suspect]
     Indication: HEPATITIS
  6. GLYCYRRHIZIC ACID (GLYCYRRHIZIC ACID) [Concomitant]
  7. ME-PREDNOSOLONE SODIUM [Concomitant]
  8. INTEFERON (INTEFERON) [Concomitant]

REACTIONS (9)
  - ASCITES [None]
  - CONDITION AGGRAVATED [None]
  - HEPATIC ATROPHY [None]
  - HEPATIC CIRRHOSIS [None]
  - HEPATIC ENCEPHALOPATHY [None]
  - HEPATIC FAILURE [None]
  - OESOPHAGEAL VARICES HAEMORRHAGE [None]
  - RENAL DISORDER [None]
  - SPLENOMEGALY [None]
